FAERS Safety Report 4325931-2 (Version None)
Quarter: 2004Q1

REPORT INFORMATION
  Report Type: 
  Country: None (occurrence: None)
  Receive Date: 20040329
  Receipt Date: 20040323
  Transmission Date: 20041129
  Serious: Yes (Other)
  Sender: FDA-Public Use
  Company Number: FR-BRISTOL-MYERS SQUIBB COMPANY-12540365

PATIENT
  Age: 72 Year
  Sex: Male

DRUGS (5)
  1. VASTEN TABS 20 MG [Suspect]
     Dosage: DOSAGE FORM = 20 MG
     Route: 048
     Dates: start: 20020101
  2. PREVISCAN [Concomitant]
     Route: 048
  3. BISOPROLOL FUMARATE [Concomitant]
     Route: 048
  4. TRANXENE [Concomitant]
     Route: 048
  5. CYCLO 3 [Concomitant]

REACTIONS (1)
  - RETINAL TEAR [None]
